FAERS Safety Report 12592341 (Version 2)
Quarter: 2016Q3

REPORT INFORMATION
  Report Type: Spontaneous
  Country: US (occurrence: US)
  Receive Date: 20160726
  Receipt Date: 20160802
  Transmission Date: 20161109
  Serious: Yes (Other)
  Sender: FDA-Public Use
  Company Number: US-ASTRAZENECA-2016SE77900

PATIENT
  Age: 79 Year
  Sex: Female

DRUGS (1)
  1. CRESTOR [Suspect]
     Active Substance: ROSUVASTATIN CALCIUM
     Indication: BLOOD CHOLESTEROL ABNORMAL
     Dosage: DOSE AND FREQUENCY UNKNOWN
     Route: 048

REACTIONS (3)
  - Muscular weakness [Unknown]
  - High density lipoprotein increased [Unknown]
  - Myositis [Unknown]
